FAERS Safety Report 19692754 (Version 7)
Quarter: 2023Q2

REPORT INFORMATION
  Report Type: Report from Study
  Country: US (occurrence: US)
  Receive Date: 20210812
  Receipt Date: 20230607
  Transmission Date: 20230722
  Serious: Yes (Hospitalization, Other)
  Sender: FDA-Public Use
  Company Number: US-SHIRE-US202010787

PATIENT
  Age: 69 Year
  Sex: Male

DRUGS (8)
  1. TEDUGLUTIDE [Suspect]
     Active Substance: TEDUGLUTIDE
     Indication: Short-bowel syndrome
     Dosage: 0.13 MILLILITER, QD
     Route: 058
  2. TEDUGLUTIDE [Suspect]
     Active Substance: TEDUGLUTIDE
     Indication: Short-bowel syndrome
     Dosage: 0.13 MILLILITER, QD
     Route: 058
  3. TEDUGLUTIDE [Suspect]
     Active Substance: TEDUGLUTIDE
     Indication: Short-bowel syndrome
     Dosage: 0.13 MILLILITER, QD
     Route: 058
  4. TEDUGLUTIDE [Suspect]
     Active Substance: TEDUGLUTIDE
     Indication: Short-bowel syndrome
     Dosage: 0.13 MILLILITER, QD
     Route: 058
  5. TEDUGLUTIDE [Suspect]
     Active Substance: TEDUGLUTIDE
     Dosage: 1.3 MILLIGRAM, QD
     Route: 058
     Dates: start: 20190624, end: 20221129
  6. TEDUGLUTIDE [Suspect]
     Active Substance: TEDUGLUTIDE
     Dosage: 1.3 MILLIGRAM, QD
     Route: 058
     Dates: start: 20190624, end: 20221129
  7. TEDUGLUTIDE [Suspect]
     Active Substance: TEDUGLUTIDE
     Dosage: 1.3 MILLIGRAM, QD
     Route: 058
     Dates: start: 20190624, end: 20221129
  8. TEDUGLUTIDE [Suspect]
     Active Substance: TEDUGLUTIDE
     Dosage: 1.3 MILLIGRAM, QD
     Route: 058
     Dates: start: 20190624, end: 20221129

REACTIONS (10)
  - Obstruction [Recovering/Resolving]
  - Pleural effusion [Recovered/Resolved]
  - Pneumonia [Recovering/Resolving]
  - Dehydration [Unknown]
  - Gastrointestinal haemorrhage [Recovered/Resolved]
  - Sepsis [Recovering/Resolving]
  - Anaemia [Recovering/Resolving]
  - Dyspnoea [Recovering/Resolving]
  - Device malfunction [Unknown]
  - Product dose omission issue [Unknown]

NARRATIVE: CASE EVENT DATE: 20210718
